FAERS Safety Report 8424261-7 (Version None)
Quarter: 2012Q2

REPORT INFORMATION
  Report Type: 
  Country: None (occurrence: None)
  Receive Date: 20120608
  Receipt Date: 20111129
  Transmission Date: 20120825
  Serious: No
  Sender: FDA-Public Use
  Company Number: US-ASTRAZENECA-2011SE72401

PATIENT
  Age: 78 Year
  Sex: Female

DRUGS (3)
  1. BLOOD PRESSURE MEDICINES [Concomitant]
  2. ALBUTEROL [Concomitant]
     Indication: DYSPNOEA
  3. PULMICORT [Suspect]
     Indication: SARCOIDOSIS
     Dosage: 0.5 MG/ 2 ML, TWO TIMES A DAY
     Route: 055
     Dates: start: 20110701

REACTIONS (5)
  - MALAISE [None]
  - EXPIRED DRUG ADMINISTERED [None]
  - DRUG ADMINISTERED TO PATIENT OF INAPPROPRIATE AGE [None]
  - WRONG DRUG ADMINISTERED [None]
  - OFF LABEL USE [None]
